FAERS Safety Report 8894157 (Version 1)
Quarter: 2012Q4

REPORT INFORMATION
  Report Type: 
  Country: US (occurrence: US)
  Receive Date: 20121108
  Receipt Date: 20121108
  Transmission Date: 20130627
  Serious: Yes (Hospitalization)
  Sender: FDA-Public Use
  Company Number: US-009507513-1211USA001369

PATIENT
  Age: 17 Year
  Sex: Female

DRUGS (1)
  1. NUVARING [Suspect]
     Indication: CONTRACEPTION
     Dosage: UNK
     Dates: start: 201205, end: 201206

REACTIONS (2)
  - Cerebrovascular accident [Recovered/Resolved with Sequelae]
  - Product quality issue [Unknown]
